FAERS Safety Report 6707888-X (Version None)
Quarter: 2010Q2

REPORT INFORMATION
  Report Type: 
  Country: None (occurrence: None)
  Receive Date: 20100503
  Receipt Date: 20090731
  Transmission Date: 20101027
  Serious: No
  Sender: FDA-Public Use
  Company Number: US-ASTRAZENECA-2009SE06678

PATIENT
  Sex: Female
  Weight: 41.7 kg

DRUGS (3)
  1. NEXIUM [Suspect]
     Indication: GASTROOESOPHAGEAL REFLUX DISEASE
     Route: 048
  2. ATENOLOL [Concomitant]
  3. OSTEOPOROSIS MEDICATION UNKNOWN NAME [Concomitant]
     Indication: OSTEOPOROSIS

REACTIONS (2)
  - BREAKTHROUGH PAIN [None]
  - DRUG INEFFECTIVE [None]
